FAERS Safety Report 25570976 (Version 1)
Quarter: 2025Q3

REPORT INFORMATION
  Report Type: Spontaneous
  Country: US (occurrence: US)
  Receive Date: 20250717
  Receipt Date: 20250717
  Transmission Date: 20251021
  Serious: No
  Sender: AMNEAL
  Company Number: US-AMNEAL PHARMACEUTICALS-2025-AMRX-00089

PATIENT

DRUGS (1)
  1. ESTRADIOL [Suspect]
     Active Substance: ESTRADIOL
     Indication: Atrophic vulvovaginitis
     Route: 067
     Dates: start: 20241212

REACTIONS (10)
  - Anxiety [Unknown]
  - Vaginal discharge [Unknown]
  - Urinary tract infection [Unknown]
  - Malaise [Unknown]
  - Micturition urgency [Unknown]
  - Pollakiuria [Unknown]
  - Vulvovaginal rash [Unknown]
  - Vulvovaginal pruritus [Unknown]
  - Vulvovaginal burning sensation [Unknown]
  - Product substitution issue [Unknown]
